FAERS Safety Report 24333683 (Version 1)
Quarter: 2024Q3

REPORT INFORMATION
  Report Type: Spontaneous
  Country: US (occurrence: None)
  Receive Date: 20240918
  Receipt Date: 20240918
  Transmission Date: 20241016
  Serious: Yes (Hospitalization)
  Sender: Public
  Company Number: None

PATIENT
  Sex: Female

DRUGS (5)
  1. TOBRAMYCIN [Suspect]
     Active Substance: TOBRAMYCIN\TOBRAMYCIN SULFATE
     Indication: Chronic obstructive pulmonary disease
     Route: 055
     Dates: start: 20230822
  2. TOBRAMYCIN [Suspect]
     Active Substance: TOBRAMYCIN\TOBRAMYCIN SULFATE
     Indication: Chronic obstructive pulmonary disease
  3. CALCIUM CIT [Concomitant]
  4. VITAMINS [Concomitant]
     Active Substance: VITAMINS
  5. REMERON [Concomitant]
     Active Substance: MIRTAZAPINE

REACTIONS (2)
  - Hospitalisation [None]
  - Antibiotic therapy [None]
